FAERS Safety Report 12776831 (Version 2)
Quarter: 2016Q4

REPORT INFORMATION
  Report Type: Spontaneous
  Country: US (occurrence: US)
  Receive Date: 20160923
  Receipt Date: 20161010
  Transmission Date: 20170207
  Serious: Yes (Hospitalization, Other)
  Sender: FDA-Public Use
  Company Number: PHEH2016US023850

PATIENT
  Age: 67 Year
  Sex: Male

DRUGS (2)
  1. ASMANEX [Suspect]
     Active Substance: MOMETASONE FUROATE
     Indication: CHRONIC OBSTRUCTIVE PULMONARY DISEASE
     Dosage: 2 DF (PUFF), BID
     Route: 055
     Dates: start: 2010
  2. FORADIL [Suspect]
     Active Substance: FORMOTEROL FUMARATE
     Indication: CHRONIC OBSTRUCTIVE PULMONARY DISEASE
     Dosage: 12 UG, BID
     Route: 055
     Dates: start: 20141110, end: 20160314

REACTIONS (6)
  - Visual acuity reduced [Unknown]
  - Dyspnoea [Not Recovered/Not Resolved]
  - Foreign body [Recovered/Resolved]
  - Glaucoma [Not Recovered/Not Resolved]
  - Fall [Recovered/Resolved]
  - Foot fracture [Recovered/Resolved]

NARRATIVE: CASE EVENT DATE: 2015
